FAERS Safety Report 18014194 (Version 1)
Quarter: 2020Q3

REPORT INFORMATION
  Report Type: Spontaneous
  Country: AT (occurrence: AT)
  Receive Date: 20200713
  Receipt Date: 20200713
  Transmission Date: 20201103
  Serious: Yes (Other)
  Sender: FDA-Public Use
  Company Number: AT-MYLANLABS-2020M1062249

PATIENT
  Age: 5 Decade
  Sex: Male

DRUGS (5)
  1. APOMORPHINE [Suspect]
     Active Substance: APOMORPHINE
     Indication: PRODUCT USED FOR UNKNOWN INDICATION
     Dosage: 4 MG SINGLE DOSES
     Dates: start: 2015
  2. ROTIGOTINE [Suspect]
     Active Substance: ROTIGOTINE
     Indication: PRODUCT USED FOR UNKNOWN INDICATION
     Dosage: PATCH FORM
     Dates: start: 2017
  3. PRAMIPEXOLE. [Suspect]
     Active Substance: PRAMIPEXOLE
     Dosage: 1.05 MILLIGRAM, QD
     Dates: start: 2008
  4. PRAMIPEXOLE. [Suspect]
     Active Substance: PRAMIPEXOLE
     Indication: PRODUCT USED FOR UNKNOWN INDICATION
     Dosage: 3.15 MILLIGRAM DAILY; FORM OF THE RETARD PREPARATION
     Dates: start: 2010
  5. PRAMIPEXOLE. [Suspect]
     Active Substance: PRAMIPEXOLE
     Dosage: 2.1 MILLIGRAM DAILY
     Dates: start: 2009

REACTIONS (5)
  - Fatigue [Unknown]
  - Gambling [Recovered/Resolved]
  - Micturition urgency [Unknown]
  - Gait disturbance [Unknown]
  - Impulse-control disorder [Recovered/Resolved]

NARRATIVE: CASE EVENT DATE: 2013
